FAERS Safety Report 8386905-8 (Version None)
Quarter: 2012Q2

REPORT INFORMATION
  Report Type: 
  Country: None (occurrence: None)
  Receive Date: 20120525
  Receipt Date: 20120511
  Transmission Date: 20120825
  Serious: Yes (Other)
  Sender: FDA-Public Use
  Company Number: US-JNJFOC-20120513744

PATIENT
  Sex: Male
  Weight: 108.86 kg

DRUGS (11)
  1. DURAGESIC-100 [Suspect]
     Route: 062
  2. DURAGESIC-100 [Suspect]
     Route: 062
  3. DURAGESIC-100 [Suspect]
     Route: 062
  4. DURAGESIC-100 [Suspect]
     Indication: BACK PAIN
     Route: 062
     Dates: start: 20020101
  5. DURAGESIC-100 [Suspect]
     Route: 062
  6. DURAGESIC-100 [Suspect]
     Route: 062
  7. DURAGESIC-100 [Suspect]
     Route: 062
  8. FENTANYL-100 [Suspect]
     Indication: BREAKTHROUGH PAIN
     Route: 065
  9. DURAGESIC-100 [Suspect]
     Indication: ARACHNOIDITIS
     Route: 062
     Dates: start: 20020101
  10. DURAGESIC-100 [Suspect]
     Route: 062
  11. DURAGESIC-100 [Suspect]
     Route: 062

REACTIONS (8)
  - MUSCULOSKELETAL DISORDER [None]
  - THINKING ABNORMAL [None]
  - ARACHNOIDITIS [None]
  - SPINAL COLUMN STENOSIS [None]
  - PAIN [None]
  - DRUG DOSE OMISSION [None]
  - BREAKTHROUGH PAIN [None]
  - PRODUCT QUALITY ISSUE [None]
